FAERS Safety Report 6779655-2 (Version None)
Quarter: 2010Q2

REPORT INFORMATION
  Report Type: 
  Country: None (occurrence: None)
  Receive Date: 20100618
  Receipt Date: 20100610
  Transmission Date: 20101027
  Serious: Yes (Other)
  Sender: FDA-Public Use
  Company Number: D0066416A

PATIENT
  Age: 58 Year
  Sex: Male
  Weight: 84 kg

DRUGS (1)
  1. IMIGRAN [Suspect]
     Route: 048

REACTIONS (7)
  - ARRHYTHMIA [None]
  - CARDIAC FAILURE [None]
  - CARDIOMYOPATHY [None]
  - DILATATION VENTRICULAR [None]
  - EJECTION FRACTION DECREASED [None]
  - OVERDOSE [None]
  - VENTRICULAR EXTRASYSTOLES [None]
